FAERS Safety Report 16412093 (Version 1)
Quarter: 2019Q2

REPORT INFORMATION
  Report Type: Other
  Country: DE (occurrence: DE)
  Receive Date: 20190610
  Receipt Date: 20190610
  Transmission Date: 20190711
  Serious: Yes (Hospitalization, Other)
  Sender: FDA-Public Use
  Company Number: DE-SANTOS BIOTECH INDUSTRIES, INC.-2068041

PATIENT
  Age: 92 Year
  Sex: Male

DRUGS (1)
  1. ARIPIPRAZOLE. [Suspect]
     Active Substance: ARIPIPRAZOLE
     Indication: DEMENTIA ALZHEIMER^S TYPE

REACTIONS (2)
  - Hypothermia [None]
  - Bradycardia [None]
